FAERS Safety Report 10592925 (Version 1)
Quarter: 2014Q4

REPORT INFORMATION
  Report Type: Spontaneous
  Country: US (occurrence: None)
  Receive Date: 20141118
  Receipt Date: 20141118
  Transmission Date: 20150529
  Serious: Yes (Hospitalization)
  Sender: FDA-Public Use
  Company Number: None

PATIENT
  Age: 79 Year
  Sex: Male
  Weight: 87 kg

DRUGS (1)
  1. BENDAMUSTINE [Suspect]
     Active Substance: BENDAMUSTINE
     Indication: NEOPLASM MALIGNANT
     Route: 042
     Dates: start: 20140820, end: 20140820

REACTIONS (2)
  - Electrocardiogram ST segment depression [None]
  - Angina pectoris [None]

NARRATIVE: CASE EVENT DATE: 20140820
